FAERS Safety Report 12738985 (Version 2)
Quarter: 2016Q4

REPORT INFORMATION
  Report Type: Spontaneous
  Country: PL (occurrence: PL)
  Receive Date: 20160913
  Receipt Date: 20161101
  Transmission Date: 20170207
  Serious: Yes (Hospitalization)
  Sender: FDA-Public Use
  Company Number: PL-HIKMA PHARMACEUTICALS CO. LTD-2016PL008679

PATIENT

DRUGS (13)
  1. EUPHYLIN [Concomitant]
     Active Substance: AMINOPHYLLINE
     Dosage: UNK
     Dates: start: 201505, end: 20160413
  2. REMSIMA [Suspect]
     Active Substance: INFLIXIMAB
     Dosage: 470 MG, UNK
     Route: 042
     Dates: start: 20160112, end: 20160112
  3. DIVVER [Concomitant]
     Dosage: UNK
     Dates: start: 201505, end: 20160413
  4. ALVESCO [Concomitant]
     Active Substance: CICLESONIDE
     Dosage: UNK
     Dates: start: 201505, end: 20160413
  5. ISOPTIN [Concomitant]
     Active Substance: VERAPAMIL HYDROCHLORIDE
     Dosage: UNK
     Dates: start: 201505, end: 20160413
  6. SPIRONOL [Concomitant]
     Active Substance: SPIRONOLACTONE
     Dosage: UNK
     Dates: start: 201505, end: 20160413
  7. REMSIMA [Suspect]
     Active Substance: INFLIXIMAB
     Indication: PSORIASIS
     Dosage: 470 MG, UNK
     Route: 042
     Dates: start: 20151130, end: 20151130
  8. REMSIMA [Suspect]
     Active Substance: INFLIXIMAB
     Dosage: 470 MG, UNK
     Route: 042
     Dates: start: 20160413, end: 20160413
  9. OXODIL [Concomitant]
     Active Substance: FORMOTEROL FUMARATE
     Dosage: UNK
     Dates: start: 201505, end: 20160413
  10. PIRAMIL [Concomitant]
     Active Substance: RAMIPRIL
     Dosage: UNK
     Dates: start: 201505, end: 20160413
  11. REMSIMA [Suspect]
     Active Substance: INFLIXIMAB
     Dosage: 470 MG, UNK
     Route: 042
     Dates: start: 20151215, end: 20151215
  12. REMSIMA [Suspect]
     Active Substance: INFLIXIMAB
     Dosage: 470 MG, UNK
     Route: 042
  13. ATROVENT [Concomitant]
     Active Substance: IPRATROPIUM BROMIDE
     Dosage: UNK
     Dates: start: 201505, end: 20160413

REACTIONS (4)
  - Lymphadenopathy [Recovering/Resolving]
  - Dysphagia [Recovering/Resolving]
  - Lymph node tuberculosis [Recovering/Resolving]
  - Respiratory tract infection [Unknown]

NARRATIVE: CASE EVENT DATE: 20160616
